FAERS Safety Report 9580966 (Version 2)
Quarter: 2013Q4

REPORT INFORMATION
  Report Type: Spontaneous
  Country: US (occurrence: US)
  Receive Date: 20131002
  Receipt Date: 20131016
  Transmission Date: 20140711
  Serious: No
  Sender: FDA-Public Use
  Company Number: US-PFIZER INC-2013279880

PATIENT
  Age: 7 Year
  Sex: Male
  Weight: 22.45 kg

DRUGS (2)
  1. ADVIL [Suspect]
     Indication: PYREXIA
     Dosage: UNK
     Dates: start: 20130927, end: 2013
  2. TYLENOL [Suspect]
     Indication: PYREXIA
     Dosage: UNK
     Dates: start: 20130927, end: 2013

REACTIONS (5)
  - Hypersensitivity [Unknown]
  - Rash generalised [Unknown]
  - Pruritus generalised [Unknown]
  - Generalised erythema [Unknown]
  - Acne [Unknown]
